FAERS Safety Report 4846555-4 (Version None)
Quarter: 2005Q4

REPORT INFORMATION
  Report Type: 
  Country: None (occurrence: None)
  Receive Date: 20051128
  Receipt Date: 20050531
  Transmission Date: 20060501
  Serious: Yes (Other)
  Sender: FDA-Public Use
  Company Number: 2005BH000090

PATIENT
  Age: 76 Year
  Sex: Female

DRUGS (1)
  1. POLYGAM S/D [Suspect]
     Indication: UVEITIS
     Dosage: 500 MG/KG/IV
     Route: 042

REACTIONS (4)
  - ARTERIOSCLEROSIS [None]
  - CORONARY ARTERY OCCLUSION [None]
  - MYOCARDIAL INFARCTION [None]
  - THROMBOPHLEBITIS [None]
